FAERS Safety Report 7063755-6 (Version None)
Quarter: 2010Q4

REPORT INFORMATION
  Report Type: 
  Country: None (occurrence: None)
  Receive Date: 20101026
  Receipt Date: 20100819
  Transmission Date: 20110411
  Serious: No
  Sender: FDA-Public Use
  Company Number: US-ABBOTT-10P-163-0665942-00

PATIENT
  Sex: Female
  Weight: 104.42 kg

DRUGS (1)
  1. LUPRON DEPOT [Suspect]
     Indication: ENDOMETRIOSIS
     Dosage: TOOK 2 INJECTIONS TOTAL
     Dates: start: 20100601

REACTIONS (3)
  - DRUG INEFFECTIVE [None]
  - HOT FLUSH [None]
  - PAIN [None]
